FAERS Safety Report 6638948-X (Version None)
Quarter: 2010Q1

REPORT INFORMATION
  Report Type: 
  Country: None (occurrence: None)
  Receive Date: 20100316
  Receipt Date: 20100316
  Transmission Date: 20100710
  Serious: Yes (Other)
  Sender: FDA-Public Use
  Company Number: None

PATIENT
  Age: 51 Year
  Sex: Female
  Weight: 94.8018 kg

DRUGS (1)
  1. CYMBALTA [Suspect]

REACTIONS (7)
  - DIZZINESS [None]
  - DRUG INEFFECTIVE [None]
  - NAUSEA [None]
  - NERVOUS SYSTEM DISORDER [None]
  - NIGHTMARE [None]
  - PAIN [None]
  - SUICIDAL IDEATION [None]
